FAERS Safety Report 15923840 (Version 1)
Quarter: 2019Q1

REPORT INFORMATION
  Report Type: Spontaneous
  Country: CA (occurrence: CA)
  Receive Date: 20190206
  Receipt Date: 20190206
  Transmission Date: 20190417
  Serious: Yes (Death, Hospitalization, Other)
  Sender: FDA-Public Use
  Company Number: CA-TEVA-2019-CA-1007242

PATIENT
  Sex: Female

DRUGS (1)
  1. METHOTREXATE. [Suspect]
     Active Substance: METHOTREXATE
     Indication: RHEUMATOID ARTHRITIS
     Route: 065

REACTIONS (8)
  - Death [Fatal]
  - Haemoglobin decreased [Fatal]
  - Mucosal discolouration [Fatal]
  - Dysuria [Fatal]
  - White blood cell count decreased [Fatal]
  - Liver injury [Fatal]
  - Renal disorder [Fatal]
  - Myocardial infarction [Fatal]
